FAERS Safety Report 8257431-1 (Version None)
Quarter: 2012Q2

REPORT INFORMATION
  Report Type: 
  Country: None (occurrence: None)
  Receive Date: 20120403
  Receipt Date: 20120321
  Transmission Date: 20120825
  Serious: Yes (Other)
  Sender: FDA-Public Use
  Company Number: NL-ROCHE-1041741

PATIENT
  Sex: Female

DRUGS (5)
  1. NUTROPIN AQ [Suspect]
     Indication: GROWTH HORMONE DEFICIENCY
     Route: 058
     Dates: start: 20120208, end: 20120209
  2. LEVOTHYROXINE SODIUM [Concomitant]
     Dates: start: 20110815
  3. DESMOPRESSIN ACETATE [Concomitant]
  4. CONTRACEPTIVE [Concomitant]
     Route: 048
     Dates: start: 20111104
  5. HYDROCORTISONE [Concomitant]
     Dosage: 10-5-2.5 MG
     Dates: start: 20110801

REACTIONS (1)
  - HYPERSENSITIVITY [None]
